FAERS Safety Report 10483468 (Version 1)
Quarter: 2014Q3

REPORT INFORMATION
  Report Type: Spontaneous
  Country: US (occurrence: None)
  Receive Date: 20140929
  Receipt Date: 20140929
  Transmission Date: 20150326
  Serious: Yes (Death, Hospitalization)
  Sender: FDA-Public Use
  Company Number: None

PATIENT
  Age: 83 Year
  Sex: Male
  Weight: 107 kg

DRUGS (5)
  1. VINCRISTINE SULFATE. [Concomitant]
     Active Substance: VINCRISTINE SULFATE
     Dates: end: 20140916
  2. PREDNISONE. [Suspect]
     Active Substance: PREDNISONE
     Dates: end: 20140920
  3. RITUXIMAB (MOAB C2B8 ANTI CD20, CHIMERIC) [Suspect]
     Active Substance: RITUXIMAB
     Dates: end: 20140916
  4. DOXORUBICIN [Suspect]
     Active Substance: DOXORUBICIN
     Dates: end: 20140916
  5. CYCLOPHOSPHAMIDE. [Suspect]
     Active Substance: CYCLOPHOSPHAMIDE
     Dates: end: 20140916

REACTIONS (7)
  - Head injury [None]
  - Urinary tract infection [None]
  - Haemoglobin decreased [None]
  - Dizziness [None]
  - Pulmonary oedema [None]
  - Fall [None]
  - Asthenia [None]

NARRATIVE: CASE EVENT DATE: 20140922
